FAERS Safety Report 9381893 (Version 2)
Quarter: 2013Q3

REPORT INFORMATION
  Report Type: Spontaneous
  Country: US (occurrence: US)
  Receive Date: 20130703
  Receipt Date: 20130715
  Transmission Date: 20140515
  Serious: Yes (Hospitalization)
  Sender: FDA-Public Use
  Company Number: US-BAYER-2013-072063

PATIENT
  Sex: Male

DRUGS (1)
  1. BAYER GENUINE ASPIRIN ORIGINAL STRENGTH [Suspect]
     Indication: ANTICOAGULANT THERAPY
     Dosage: 1 DF, ONCE
     Dates: start: 2013

REACTIONS (5)
  - Feeling abnormal [None]
  - Poisoning [None]
  - Abdominal discomfort [None]
  - Product container seal issue [None]
  - Off label use [None]
